FAERS Safety Report 13665750 (Version 4)
Quarter: 2018Q1

REPORT INFORMATION
  Report Type: Spontaneous
  Country: US (occurrence: US)
  Receive Date: 20170619
  Receipt Date: 20180306
  Transmission Date: 20180508
  Serious: Yes (Hospitalization, Other)
  Sender: FDA-Public Use
  Company Number: US-PFIZER INC-2017262908

PATIENT
  Age: 65 Year
  Sex: Female
  Weight: 136.8 kg

DRUGS (8)
  1. LYRICA [Suspect]
     Active Substance: PREGABALIN
     Indication: DIABETIC NEUROPATHY
     Dosage: 75 MG, 3X/DAY
     Route: 048
     Dates: start: 201506, end: 20170611
  2. WARFARIN [Concomitant]
     Active Substance: WARFARIN
     Indication: THROMBOSIS
     Dosage: 7 MG, DAILY
     Route: 048
     Dates: start: 2016
  3. LYRICA [Suspect]
     Active Substance: PREGABALIN
     Dosage: 75 MG, 3X/DAY
     Route: 048
     Dates: end: 20170813
  4. WARFARIN [Concomitant]
     Active Substance: WARFARIN
     Dosage: 7 MG, 1X/DAY, (TAKES A 6MG TABLET AND A 1 MG TABLET)
     Route: 048
     Dates: start: 2016
  5. LYRICA [Suspect]
     Active Substance: PREGABALIN
     Dosage: UNK
  6. HYDROCODONE [Concomitant]
     Active Substance: HYDROCODONE
     Indication: PAIN
     Dosage: 7.5 MG, EVERY 4 HOURS AS NEEDED
     Route: 048
  7. WARFARIN [Concomitant]
     Active Substance: WARFARIN
     Dosage: 7 MG, 1X/DAY, (TAKES A 6MG TABLET AND A 1 MG TABLET)
     Route: 048
     Dates: start: 2016
  8. CARISOPRODOL. [Concomitant]
     Active Substance: CARISOPRODOL
     Indication: MUSCLE SPASMS
     Dosage: 150 MG, UNK

REACTIONS (12)
  - Insomnia [Unknown]
  - Pneumonia [Not Recovered/Not Resolved]
  - Anaemia [Not Recovered/Not Resolved]
  - Ear discomfort [Unknown]
  - Thrombosis [Not Recovered/Not Resolved]
  - Restlessness [Unknown]
  - Influenza [Unknown]
  - Fall [Unknown]
  - Burning sensation [Unknown]
  - Paraesthesia [Unknown]
  - Pain in extremity [Unknown]
  - Ear infection [Unknown]

NARRATIVE: CASE EVENT DATE: 2016
